FAERS Safety Report 14615099 (Version 1)
Quarter: 2018Q1

REPORT INFORMATION
  Report Type: Spontaneous
  Country: US (occurrence: US)
  Receive Date: 20180308
  Receipt Date: 20180308
  Transmission Date: 20180509
  Serious: No
  Sender: FDA-Public Use
  Company Number: US-009507513-1803USA002256

PATIENT
  Age: 24 Year
  Sex: Female
  Weight: 81.63 kg

DRUGS (2)
  1. METFORMIN [Concomitant]
     Active Substance: METFORMIN HYDROCHLORIDE
     Route: 048
  2. NEXPLANON [Suspect]
     Active Substance: ETONOGESTREL
     Indication: CONTRACEPTION
     Dosage: 1 DF, SUBDERMALLY IN THE LEFT ARM
     Route: 059
     Dates: start: 2009, end: 2013

REACTIONS (3)
  - Menorrhagia [Unknown]
  - Infertility female [Unknown]
  - Adnexa uteri pain [Not Recovered/Not Resolved]

NARRATIVE: CASE EVENT DATE: 2013
